FAERS Safety Report 7346525-0 (Version None)
Quarter: 2011Q1

REPORT INFORMATION
  Report Type: 
  Country: None (occurrence: None)
  Receive Date: 20110311
  Receipt Date: 20110302
  Transmission Date: 20110831
  Serious: Yes (Hospitalization)
  Sender: FDA-Public Use
  Company Number: US-JNJFOC-20110302188

PATIENT
  Sex: Male
  Weight: 95.26 kg

DRUGS (17)
  1. NEURONTIN [Concomitant]
     Indication: PERIPHERAL NERVE INJURY
     Dosage: 600 MG/300 MG 2 CAPSULES/3 TIMES A DAY
     Route: 048
  2. LOSARTAN POTASSIUM [Concomitant]
     Indication: BLOOD PRESSURE
     Route: 048
  3. POTASSIUM CHLORIDE [Concomitant]
     Indication: ANAEMIA
     Route: 048
  4. FENTANYL-100 [Suspect]
     Indication: ARTHRALGIA
     Route: 062
  5. PRILOSEC [Concomitant]
     Indication: BARRETT'S OESOPHAGUS
     Route: 048
  6. IRON [Concomitant]
     Indication: ANAEMIA
     Route: 048
  7. TRAMADOL [Concomitant]
     Indication: PAIN
     Dosage: 50 MG/DAILY
     Route: 048
  8. ASPIRIN [Concomitant]
     Indication: PROPHYLAXIS
     Route: 048
  9. ROSUVASTATIN [Concomitant]
     Indication: BLOOD CHOLESTEROL
     Route: 048
  10. FENOFIBRATE [Concomitant]
     Indication: BLOOD TRIGLYCERIDES
     Route: 048
  11. FENTANYL-100 [Suspect]
     Route: 062
  12. FENTANYL CITRATE [Suspect]
     Indication: ARTHRALGIA
     Route: 062
  13. ATENOLOL [Concomitant]
     Indication: BLOOD PRESSURE
     Route: 048
  14. METFORMIN [Concomitant]
     Indication: DIABETES MELLITUS
     Route: 048
  15. HYDROCODONE [Concomitant]
     Indication: BREAKTHROUGH PAIN
     Dosage: 10/325 TABLET/AS NEEDED
     Route: 048
  16. FENTANYL-100 [Suspect]
     Indication: ARTHRALGIA
     Route: 062
  17. DILAUDID [Concomitant]
     Indication: BREAKTHROUGH PAIN
     Route: 048

REACTIONS (5)
  - PAIN [None]
  - DRUG ADMINISTERED AT INAPPROPRIATE SITE [None]
  - THERAPEUTIC RESPONSE DECREASED [None]
  - INFECTION [None]
  - INTENTIONAL DRUG MISUSE [None]
